FAERS Safety Report 25501824 (Version 2)
Quarter: 2025Q3

REPORT INFORMATION
  Report Type: Spontaneous
  Country: EU (occurrence: EU)
  Receive Date: 20250702
  Receipt Date: 20250708
  Transmission Date: 20251021
  Serious: Yes (Other)
  Sender: BAXTER
  Company Number: None

PATIENT
  Age: 37 Year
  Sex: Female

DRUGS (2)
  1. PROPOFOL [Suspect]
     Active Substance: PROPOFOL
     Route: 065
     Dates: start: 20250520
  2. VENLAFAXINE [Concomitant]
     Active Substance: VENLAFAXINE HYDROCHLORIDE
     Dosage: 150 MG, 1 DAY
     Route: 065

REACTIONS (3)
  - Toxicity to various agents [Recovered/Resolved]
  - Overdose [Recovered/Resolved]
  - Depressed level of consciousness [Recovered/Resolved]

NARRATIVE: CASE EVENT DATE: 20250520
